FAERS Safety Report 8446446-6 (Version None)
Quarter: 2012Q2

REPORT INFORMATION
  Report Type: 
  Country: None (occurrence: None)
  Receive Date: 20120618
  Receipt Date: 20120331
  Transmission Date: 20120825
  Serious: No
  Sender: FDA-Public Use
  Company Number: US-TEVA-329391USA

PATIENT
  Sex: Female

DRUGS (2)
  1. ACTIQ [Suspect]
     Indication: BREAKTHROUGH PAIN
     Route: 002
  2. FILGRASTIM [Concomitant]

REACTIONS (4)
  - FALL [None]
  - CYSTITIS [None]
  - HEAD INJURY [None]
  - JOINT INJURY [None]
